FAERS Safety Report 8346897-4 (Version None)
Quarter: 2012Q2

REPORT INFORMATION
  Report Type: 
  Country: None (occurrence: None)
  Receive Date: 20120509
  Receipt Date: 20120427
  Transmission Date: 20120825
  Serious: Yes (Hospitalization)
  Sender: FDA-Public Use
  Company Number: GB-TEVA-336736ISR

PATIENT
  Age: 82 Year
  Sex: Male

DRUGS (2)
  1. AZILECT [Interacting]
     Indication: PARKINSON'S DISEASE
     Dosage: 1 MILLIGRAM;
     Route: 048
     Dates: start: 20090101
  2. SINEMET [Suspect]
     Indication: PARKINSON'S DISEASE
     Dosage: 187.5 MILLIGRAM;
     Route: 048
     Dates: start: 20090101

REACTIONS (4)
  - PSYCHOTIC DISORDER [None]
  - OFF LABEL USE [None]
  - HALLUCINATION [None]
  - DEMENTIA WITH LEWY BODIES [None]
